FAERS Safety Report 14267421 (Version 1)
Quarter: 2017Q4

REPORT INFORMATION
  Report Type: Spontaneous
  Country: AU (occurrence: AU)
  Receive Date: 20171209
  Receipt Date: 20171209
  Transmission Date: 20180321
  Serious: Yes (Hospitalization, Disabling)
  Sender: FDA-Public Use
  Company Number: None

PATIENT
  Age: 46 Year
  Sex: Female
  Weight: 59 kg

DRUGS (6)
  1. DIPROSONE [Suspect]
     Active Substance: BETAMETHASONE DIPROPIONATE
     Indication: ECZEMA
     Dosage: STRENGTH 0.05% PER G GRAM?  QUANTITY:100 OINTMENT;?
     Route: 061
  2. VENTILIN [Concomitant]
  3. MULTI VITAMINS [Concomitant]
     Active Substance: VITAMINS
  4. ZINC. [Concomitant]
     Active Substance: ZINC
  5. ELEUPHRAT [Suspect]
     Active Substance: BETAMETHASONE DIPROPIONATE
  6. METHOTREXATE. [Concomitant]
     Active Substance: METHOTREXATE

REACTIONS (4)
  - Suicidal ideation [None]
  - Depression [None]
  - Withdrawal syndrome [None]
  - Insomnia [None]

NARRATIVE: CASE EVENT DATE: 19740214
